FAERS Safety Report 9934811 (Version 1)
Quarter: 2014Q1

REPORT INFORMATION
  Report Type: Spontaneous
  Country: FR (occurrence: FR)
  Receive Date: 20140228
  Receipt Date: 20140228
  Transmission Date: 20141002
  Serious: Yes (Hospitalization)
  Sender: FDA-Public Use
  Company Number: FR-GLAXOSMITHKLINE-B0971082A

PATIENT
  Age: 89 Year
  Sex: Female

DRUGS (8)
  1. CLAMOXYL IV [Suspect]
     Indication: PNEUMONIA STREPTOCOCCAL
     Dosage: 2G FOUR TIMES PER DAY
     Route: 042
     Dates: start: 20131224, end: 20140102
  2. CEFTRIAXONE [Suspect]
     Indication: PNEUMONIA STREPTOCOCCAL
     Dosage: 1G PER DAY
     Route: 042
     Dates: start: 20131216, end: 20131223
  3. OFLOXACIN [Suspect]
     Indication: PNEUMONIA STREPTOCOCCAL
     Dosage: 200MG TWICE PER DAY
     Route: 042
     Dates: start: 20131216, end: 20131223
  4. PERFALGAN [Suspect]
     Dosage: 1G THREE TIMES PER DAY
     Route: 042
     Dates: start: 20131216, end: 20131224
  5. TOPALGIC (FRANCE) [Suspect]
     Route: 048
     Dates: start: 20131217, end: 20131224
  6. ACICLOVIR [Suspect]
     Indication: HERPES VIRUS INFECTION
     Dosage: 500MG FOUR TIMES PER DAY
     Route: 042
     Dates: start: 20131221, end: 20140103
  7. FUROSEMIDE [Suspect]
     Route: 030
     Dates: start: 20131216, end: 20131230
  8. FRAGMINE [Concomitant]
     Indication: PROPHYLAXIS
     Dates: start: 20131216, end: 20140110

REACTIONS (5)
  - Thrombophlebitis superficial [Recovering/Resolving]
  - Deep vein thrombosis [Recovering/Resolving]
  - Oedema peripheral [Unknown]
  - Confusional state [Recovered/Resolved]
  - Incorrect dose administered [Unknown]
